FAERS Safety Report 5034151-8 (Version None)
Quarter: 2006Q2

REPORT INFORMATION
  Report Type: 
  Country: None (occurrence: None)
  Receive Date: 20060626
  Receipt Date: 20060621
  Transmission Date: 20061013
  Serious: Yes (Other)
  Sender: FDA-Public Use
  Company Number: JP-SP-2006-01557

PATIENT
  Age: 65 Year
  Sex: Male

DRUGS (1)
  1. IMMUCYST [Suspect]
     Indication: BLADDER CANCER
     Route: 043
     Dates: start: 20060421, end: 20060506

REACTIONS (4)
  - PROSTATIC ABSCESS [None]
  - PROSTATITIS [None]
  - PYREXIA [None]
  - URINARY RETENTION [None]
